FAERS Safety Report 5223110-8 (Version None)
Quarter: 2007Q1

REPORT INFORMATION
  Report Type: 
  Country: None (occurrence: None)
  Receive Date: 20070129
  Receipt Date: 20070117
  Transmission Date: 20070707
  Serious: Yes (Hospitalization)
  Sender: FDA-Public Use
  Company Number: IN-PFIZER INC-2007005206

PATIENT
  Age: 60 Year
  Sex: Male

DRUGS (2)
  1. MAGNEX [Suspect]
     Indication: RESPIRATORY TRACT INFECTION
     Route: 042
  2. AMIKACIN [Concomitant]
     Route: 042

REACTIONS (2)
  - DISSEMINATED INTRAVASCULAR COAGULATION [None]
  - HAEMORRHAGE URINARY TRACT [None]
